FAERS Safety Report 4462951-1 (Version None)
Quarter: 2004Q3

REPORT INFORMATION
  Report Type: 
  Country: None (occurrence: None)
  Receive Date: 20040927
  Receipt Date: 20040915
  Transmission Date: 20050211
  Serious: No
  Sender: FDA-Public Use
  Company Number: 2004-120274-NL

PATIENT
  Age: 32 Year
  Sex: Female

DRUGS (1)
  1. NUVARING [Suspect]
     Indication: CONTRACEPTION
     Dosage: DF
     Route: 067
     Dates: start: 20031215, end: 20040709

REACTIONS (4)
  - DECREASED APPETITE [None]
  - INCREASED APPETITE [None]
  - MENTAL DISORDER [None]
  - MOOD SWINGS [None]
